FAERS Safety Report 9740743 (Version 1)
Quarter: 2013Q4

REPORT INFORMATION
  Report Type: Spontaneous
  Country: US (occurrence: US)
  Receive Date: 20131209
  Receipt Date: 20131209
  Transmission Date: 20140711
  Serious: No
  Sender: FDA-Public Use
  Company Number: US-BIOGENIDEC-2013BI100766

PATIENT
  Age: 32 Year
  Sex: Female

DRUGS (7)
  1. TECFIDERA [Suspect]
     Indication: MULTIPLE SCLEROSIS
     Route: 048
     Dates: start: 20130805
  2. AMARYL [Concomitant]
  3. LEVEMIR FLEXPEN [Concomitant]
  4. LEVOTHYROXINE SODIUM [Concomitant]
  5. METFORMIN [Concomitant]
  6. PRAVASTATIN SODIUM [Concomitant]
  7. SYNTHROID [Concomitant]

REACTIONS (1)
  - Urinary tract infection [Unknown]
